FAERS Safety Report 8716882 (Version 3)
Quarter: 2013Q1

REPORT INFORMATION
  Report Type: Report from Study
  Country: GB (occurrence: GB)
  Receive Date: 20120810
  Receipt Date: 20130116
  Transmission Date: 20140127
  Serious: Yes (Hospitalization)
  Sender: FDA-Public Use
  Company Number: GB-MPIJNJ-2012-04938

PATIENT
  Sex: 0

DRUGS (24)
  1. VELCADE [Suspect]
     Indication: DIFFUSE LARGE B-CELL LYMPHOMA
     Dosage: 2.6 MG, UNK
     Route: 065
     Dates: start: 20120403, end: 20120704
  2. RITUXIMAB [Suspect]
     Indication: DIFFUSE LARGE B-CELL LYMPHOMA
     Dosage: 750 MG, UNK
     Route: 065
     Dates: start: 20120403, end: 20120704
  3. CYCLOPHOSPHAMIDE [Suspect]
     Indication: DIFFUSE LARGE B-CELL LYMPHOMA
     Dosage: 1500 MG, UNK
     Route: 065
     Dates: start: 20120403, end: 20120704
  4. VINCRISTINE [Suspect]
     Indication: DIFFUSE LARGE B-CELL LYMPHOMA
     Dosage: 2 MG, UNK
     Route: 065
     Dates: start: 20120403, end: 20120704
  5. DOXORUBICIN [Suspect]
     Indication: DIFFUSE LARGE B-CELL LYMPHOMA
     Dosage: 100 MG, UNK
     Route: 065
     Dates: start: 20120403, end: 20120704
  6. PREDNISOLONE [Suspect]
     Indication: DIFFUSE LARGE B-CELL LYMPHOMA
     Dosage: 100 MG, UNK
     Route: 065
     Dates: start: 20120403, end: 20120708
  7. VENTOLIN                           /00139501/ [Concomitant]
     Dosage: UNK MG, UNK
     Dates: start: 20090406
  8. SYMBICORT [Concomitant]
     Dosage: UNK
     Dates: start: 20120504
  9. MONTELUKAST [Concomitant]
     Dosage: 10 MG, UNK
     Route: 048
     Dates: start: 20111004
  10. CETRABEN                           /01561901/ [Concomitant]
     Dosage: UNK
     Route: 061
     Dates: start: 20091221
  11. CITALOPRAM [Concomitant]
     Dosage: 10 MG, UNK
     Route: 048
     Dates: start: 20080918
  12. FERROUS FUMARATE [Concomitant]
     Dosage: 210 MG, UNK
     Route: 048
     Dates: start: 20120127
  13. CARBIMAZOLE [Concomitant]
     Dosage: 5 MG, UNK
     Route: 048
     Dates: start: 20111206
  14. TRAMADOL [Concomitant]
     Dosage: 100 MG, UNK
     Route: 048
     Dates: start: 20120313
  15. CHLORHEXIDINE [Concomitant]
     Dosage: 10 ML, UNK
     Dates: start: 20120403
  16. CLEXANE [Concomitant]
     Dosage: 150 MG, UNK
     Route: 058
     Dates: start: 20120423
  17. PREDNISOLONE [Concomitant]
     Dosage: 100 MG, UNK
     Route: 048
     Dates: start: 20120403
  18. OMEPRAZOLE [Concomitant]
     Dosage: 20 MG, UNK
     Route: 048
     Dates: start: 20120403
  19. CO-TRIMOXAZOLE [Concomitant]
     Dosage: 480 MG, UNK
     Route: 048
     Dates: start: 20120403
  20. FLUCONAZOLE [Concomitant]
     Dosage: 50 MG, UNK
     Route: 048
     Dates: start: 20120403, end: 20120711
  21. ACICLOVIR [Concomitant]
     Dosage: 400 MG, UNK
     Route: 048
     Dates: start: 20120403
  22. METOCLOPRAMIDE [Concomitant]
     Dosage: 20 MG, UNK
     Route: 048
     Dates: start: 20120403
  23. ITRACONAZOLE [Concomitant]
     Dosage: 200 MG, UNK
     Route: 048
     Dates: start: 20120711, end: 20120723
  24. NITROFURANTOIN [Concomitant]
     Dosage: UNK
     Route: 048
     Dates: start: 20120713, end: 20120717

REACTIONS (1)
  - Pulmonary mycosis [Recovered/Resolved]
